FAERS Safety Report 25203600 (Version 1)
Quarter: 2025Q2

REPORT INFORMATION
  Report Type: Spontaneous
  Country: US (occurrence: US)
  Receive Date: 20250416
  Receipt Date: 20250416
  Transmission Date: 20250716
  Serious: No
  Sender: SANOFI AVENTIS
  Company Number: US-SA-2025SA108454

PATIENT
  Sex: Male
  Weight: 86.36 kg

DRUGS (2)
  1. DUPIXENT [Suspect]
     Active Substance: DUPILUMAB
     Indication: Illness
     Dosage: 300 MG, QOW
     Route: 058
  2. TREMFYA [Concomitant]
     Active Substance: GUSELKUMAB

REACTIONS (1)
  - Drug ineffective for unapproved indication [Unknown]
